FAERS Safety Report 24173473 (Version 1)
Quarter: 2024Q3

REPORT INFORMATION
  Report Type: Spontaneous
  Country: US (occurrence: US)
  Receive Date: 20240805
  Receipt Date: 20240805
  Transmission Date: 20241016
  Serious: Yes (Other)
  Sender: SPECGX
  Company Number: US-SPECGX-T202401607

PATIENT
  Age: 22 Year
  Sex: Female

DRUGS (48)
  1. MORPHINE [Suspect]
     Active Substance: MORPHINE
     Indication: Neck pain
     Dosage: UNK
     Route: 065
  2. MORPHINE [Suspect]
     Active Substance: MORPHINE
     Indication: Arthralgia
  3. MORPHINE [Suspect]
     Active Substance: MORPHINE
     Indication: Back pain
  4. MORPHINE [Suspect]
     Active Substance: MORPHINE
     Indication: Pain in extremity
  5. HYDROMORPHONE [Suspect]
     Active Substance: HYDROMORPHONE
     Indication: Neck pain
     Dosage: UNK
     Route: 065
  6. HYDROMORPHONE [Suspect]
     Active Substance: HYDROMORPHONE
     Indication: Arthralgia
  7. HYDROMORPHONE [Suspect]
     Active Substance: HYDROMORPHONE
     Indication: Back pain
  8. HYDROMORPHONE [Suspect]
     Active Substance: HYDROMORPHONE
     Indication: Pain in extremity
  9. CLONAZEPAM [Concomitant]
     Active Substance: CLONAZEPAM
     Indication: Muscle spasticity
     Dosage: 0.5 MILLIGRAM, QHS
     Route: 048
  10. CLONAZEPAM [Concomitant]
     Active Substance: CLONAZEPAM
     Indication: Neck pain
     Dosage: UNK (AT NIGHT)
     Route: 048
  11. CLONAZEPAM [Concomitant]
     Active Substance: CLONAZEPAM
     Indication: Arthralgia
  12. CLONAZEPAM [Concomitant]
     Active Substance: CLONAZEPAM
     Indication: Pain in extremity
  13. CLONAZEPAM [Concomitant]
     Active Substance: CLONAZEPAM
     Indication: Back pain
  14. GABAPENTIN [Concomitant]
     Active Substance: GABAPENTIN
     Indication: Neck pain
     Dosage: 1200 MILLIGRAM, QD
     Route: 048
  15. GABAPENTIN [Concomitant]
     Active Substance: GABAPENTIN
     Indication: Arthralgia
  16. GABAPENTIN [Concomitant]
     Active Substance: GABAPENTIN
     Indication: Back pain
  17. GABAPENTIN [Concomitant]
     Active Substance: GABAPENTIN
     Indication: Pain in extremity
  18. TIZANIDINE [Concomitant]
     Active Substance: TIZANIDINE
     Indication: Neck pain
     Dosage: 10 MILLIGRAM, QD
     Route: 048
  19. TIZANIDINE [Concomitant]
     Active Substance: TIZANIDINE
     Indication: Arthralgia
  20. TIZANIDINE [Concomitant]
     Active Substance: TIZANIDINE
     Indication: Back pain
  21. TIZANIDINE [Concomitant]
     Active Substance: TIZANIDINE
     Indication: Pain in extremity
  22. AMITRIPTYLINE [Concomitant]
     Active Substance: AMITRIPTYLINE
     Indication: Neck pain
     Dosage: 25 MILLIGRAM, QHS
     Route: 048
  23. AMITRIPTYLINE [Concomitant]
     Active Substance: AMITRIPTYLINE
     Indication: Arthralgia
  24. AMITRIPTYLINE [Concomitant]
     Active Substance: AMITRIPTYLINE
     Indication: Back pain
  25. AMITRIPTYLINE [Concomitant]
     Active Substance: AMITRIPTYLINE
     Indication: Pain in extremity
  26. ZICONOTIDE [Concomitant]
     Active Substance: ZICONOTIDE
     Indication: Neck pain
     Dosage: UNK
     Route: 065
  27. ZICONOTIDE [Concomitant]
     Active Substance: ZICONOTIDE
     Indication: Arthralgia
  28. ZICONOTIDE [Concomitant]
     Active Substance: ZICONOTIDE
     Indication: Back pain
  29. ZICONOTIDE [Concomitant]
     Active Substance: ZICONOTIDE
     Indication: Pain in extremity
  30. DANTROLENE [Concomitant]
     Active Substance: DANTROLENE
     Indication: Muscle spasticity
     Dosage: 50 MILLIGRAM, PRN (BID)
     Route: 065
  31. BACLOFEN [Concomitant]
     Active Substance: BACLOFEN
     Indication: Cerebral palsy
     Dosage: UNK
     Route: 037
  32. BACLOFEN [Concomitant]
     Active Substance: BACLOFEN
     Indication: Muscle spasticity
     Dosage: 900.2 MICROGRAM, QD (PUMP THERAPY)
     Route: 037
  33. BACLOFEN [Concomitant]
     Active Substance: BACLOFEN
     Dosage: 1155.2 MICROGRAM, QD
     Route: 065
  34. BUPIVACAINE [Concomitant]
     Active Substance: BUPIVACAINE
     Indication: Neck pain
     Dosage: UNK
     Route: 065
  35. BUPIVACAINE [Concomitant]
     Active Substance: BUPIVACAINE
     Indication: Arthralgia
     Dosage: 2.310 MILLIGRAM, QD
     Route: 065
  36. BUPIVACAINE [Concomitant]
     Active Substance: BUPIVACAINE
     Indication: Back pain
  37. BUPIVACAINE [Concomitant]
     Active Substance: BUPIVACAINE
     Indication: Pain in extremity
  38. BOTOX [Concomitant]
     Active Substance: ONABOTULINUMTOXINA
     Indication: Muscle spasticity
     Dosage: UNK  (400 UNITS)
     Route: 065
  39. BOTOX [Concomitant]
     Active Substance: ONABOTULINUMTOXINA
     Indication: Arthralgia
     Dosage: UNK  (200 UNITS Q6MONTHS)
     Route: 065
  40. BOTOX [Concomitant]
     Active Substance: ONABOTULINUMTOXINA
     Indication: Back pain
  41. BOTOX [Concomitant]
     Active Substance: ONABOTULINUMTOXINA
     Indication: Pain in extremity
  42. BOTOX [Concomitant]
     Active Substance: ONABOTULINUMTOXINA
     Indication: Neck pain
  43. DIAZEPAM [Concomitant]
     Active Substance: DIAZEPAM
     Indication: Muscle spasticity
     Dosage: 5 MILLIGRAM, BID
     Route: 065
  44. LIDOCAINE [Concomitant]
     Active Substance: LIDOCAINE
     Indication: Muscle spasticity
     Dosage: UNK
     Route: 065
  45. LIDOCAINE [Concomitant]
     Active Substance: LIDOCAINE
     Indication: Arthralgia
  46. LIDOCAINE [Concomitant]
     Active Substance: LIDOCAINE
     Indication: Back pain
  47. LIDOCAINE [Concomitant]
     Active Substance: LIDOCAINE
     Indication: Pain in extremity
  48. LIDOCAINE [Concomitant]
     Active Substance: LIDOCAINE
     Indication: Neck pain

REACTIONS (3)
  - Myasthenia gravis [Unknown]
  - Nausea [Unknown]
  - Drug hypersensitivity [Unknown]
